FAERS Safety Report 9534998 (Version 2)
Quarter: 2013Q4

REPORT INFORMATION
  Report Type: Spontaneous
  Country: US (occurrence: US)
  Receive Date: 20130918
  Receipt Date: 20131110
  Transmission Date: 20140711
  Serious: No
  Sender: FDA-Public Use
  Company Number: US-TEVA-432808USA

PATIENT
  Age: 3 Year
  Sex: Male

DRUGS (5)
  1. MONTELUKAST [Concomitant]
     Dosage: 4 MILLIGRAM DAILY;
     Route: 048
  2. PREDNISONE [Concomitant]
     Indication: ASTHMA
  3. QVAR [Suspect]
     Indication: COUGH
     Dosage: 1 PUFF
     Route: 055
     Dates: start: 201307
  4. QVAR [Suspect]
     Indication: WHEEZING
     Dosage: 2 PUFFS
     Route: 055
     Dates: start: 201307, end: 20130821
  5. LEVALBUTEROL HYDROCHLORIDE [Concomitant]

REACTIONS (7)
  - Irritability [Recovered/Resolved]
  - Pain in extremity [Recovered/Resolved]
  - Pain in extremity [Recovered/Resolved]
  - Oral pain [Recovered/Resolved]
  - Arthralgia [Recovered/Resolved]
  - Breath odour [Unknown]
  - Off label use [Unknown]
